FAERS Safety Report 10629032 (Version 1)
Quarter: 2014Q4

REPORT INFORMATION
  Report Type: Spontaneous
  Country: FR (occurrence: FR)
  Receive Date: 20141205
  Receipt Date: 20141205
  Transmission Date: 20150529
  Serious: Yes (Other)
  Sender: FDA-Public Use
  Company Number: FR-ASTRAZENECA-2014SE92581

PATIENT
  Age: 637 Month
  Sex: Male

DRUGS (5)
  1. XEROQUEL [Suspect]
     Active Substance: QUETIAPINE FUMARATE
     Indication: BIPOLAR DISORDER
     Dosage: 200 MG, IN THE EVENING
     Route: 048
     Dates: start: 20141122, end: 20141123
  2. XEROQUEL [Suspect]
     Active Substance: QUETIAPINE FUMARATE
     Indication: BIPOLAR DISORDER
     Dosage: 50 MG, IN THE EVENING
     Route: 048
     Dates: start: 20141118, end: 20141119
  3. XEROQUEL [Suspect]
     Active Substance: QUETIAPINE FUMARATE
     Indication: BIPOLAR DISORDER
     Dosage: 100 MG, IN THE EVENING
     Route: 048
     Dates: start: 20141119, end: 20141121
  4. XEROQUEL [Suspect]
     Active Substance: QUETIAPINE FUMARATE
     Indication: BIPOLAR DISORDER
     Dosage: 150 MG, IN THE EVENING
     Route: 048
     Dates: start: 20141121, end: 20141122
  5. LEXOMIL [Concomitant]
     Active Substance: BROMAZEPAM

REACTIONS (3)
  - Dyskinesia [Recovered/Resolved]
  - Speech disorder [Unknown]
  - Off label use [Recovered/Resolved]

NARRATIVE: CASE EVENT DATE: 201411
